FAERS Safety Report 4467724-1 (Version None)
Quarter: 2004Q3

REPORT INFORMATION
  Report Type: 
  Country: None (occurrence: None)
  Receive Date: 20040928
  Receipt Date: 20040913
  Transmission Date: 20050211
  Serious: Yes (Other)
  Sender: FDA-Public Use
  Company Number: 2004-120325-NL

PATIENT
  Age: 66 Year
  Sex: Male

DRUGS (3)
  1. TICE BCG [Suspect]
     Indication: BLADDER CANCER
     Dosage: 1 D WEEKLY INTRAVESICAL, 6 WEEKLY INSTILLATIONS OF 1 VIAL IN 50 CC NSS
     Route: 043
     Dates: start: 20031003, end: 20031107
  2. TICE BCG [Suspect]
     Indication: BLADDER CANCER
     Dosage: 1 DF WEEKLY INTRAVESICAL, 2 WEEKLY INSTILLATIONS (FIRST MAINTANCE ROUND)
     Route: 043
     Dates: start: 20040123, end: 20040130
  3. TICE BCG [Suspect]
     Indication: BLADDER CANCER
     Dosage: 1 DF WEEKLY INTRAVESICAL, 2 WEEKLY INSTILLATIONS( SECOND MAINTANCE ROUND)
     Route: 043
     Dates: start: 20040827, end: 20040903

REACTIONS (8)
  - BLADDER CANCER RECURRENT [None]
  - BURNING SENSATION [None]
  - DYSURIA [None]
  - HERPES SIMPLEX [None]
  - INFLUENZA LIKE ILLNESS [None]
  - POLLAKIURIA [None]
  - PYREXIA [None]
  - URINE FLOW DECREASED [None]
